FAERS Safety Report 16764585 (Version 5)
Quarter: 2019Q3

REPORT INFORMATION
  Report Type: Spontaneous
  Country: GB (occurrence: GB)
  Receive Date: 20190902
  Receipt Date: 20190923
  Transmission Date: 20191005
  Serious: Yes (Life-Threatening, Hospitalization, Other)
  Sender: FDA-Public Use
  Company Number: PHHY2019GB202536

PATIENT
  Age: 69 Year
  Sex: Male

DRUGS (5)
  1. AMLODIPINE [Suspect]
     Active Substance: AMLODIPINE BESYLATE
     Indication: HYPERTENSION
     Dosage: 3 MG/KG, UNK
     Route: 065
  2. ISOSORBID MONONITRATE [Suspect]
     Active Substance: ISOSORBIDE MONONITRATE
     Indication: TYPE 2 DIABETES MELLITUS
     Dosage: 8 MG/KG, UNK
     Route: 065
  3. GLICAZIDA [Suspect]
     Active Substance: GLICLAZIDE
     Indication: TYPE 2 DIABETES MELLITUS
     Dosage: 12 MG/KG, UNK
     Route: 065
  4. ISOSORBID MONONITRATE [Suspect]
     Active Substance: ISOSORBIDE MONONITRATE
     Indication: HYPERTENSION
  5. METFORMIN HYDROCHLORIDE. [Suspect]
     Active Substance: METFORMIN HYDROCHLORIDE
     Indication: TYPE 2 DIABETES MELLITUS
     Dosage: 155 MG/KG, UNK
     Route: 065

REACTIONS (7)
  - Overdose [Recovered/Resolved]
  - Oliguria [Recovered/Resolved]
  - Hypotension [Recovered/Resolved]
  - Acute kidney injury [Recovered/Resolved]
  - Dyspnoea [Recovered/Resolved]
  - Metabolic acidosis [Recovered/Resolved]
  - Respiratory distress [Recovered/Resolved]
